FAERS Safety Report 4297630-7 (Version None)
Quarter: 2004Q1

REPORT INFORMATION
  Report Type: 
  Country: None (occurrence: None)
  Receive Date: 20040217
  Receipt Date: 20040210
  Transmission Date: 20041129
  Serious: Yes (Hospitalization, Disabling, Other)
  Sender: FDA-Public Use
  Company Number: 2002135865US

PATIENT
  Age: 51 Year
  Sex: Female

DRUGS (1)
  1. DAYPRO [Suspect]
     Indication: TENDONITIS
     Dosage: 1200 MG, HS, ORAL
     Route: 048
     Dates: start: 20001212

REACTIONS (14)
  - BLINDNESS [None]
  - CONJUNCTIVAL ADHESION [None]
  - CONJUNCTIVAL SCAR [None]
  - CONJUNCTIVITIS [None]
  - CORNEAL OPACITY [None]
  - ENTROPION [None]
  - HYPERSENSITIVITY [None]
  - ODYNOPHAGIA [None]
  - PHARYNGOLARYNGEAL PAIN [None]
  - STAPHYLOCOCCAL INFECTION [None]
  - STEVENS-JOHNSON SYNDROME [None]
  - SYMBLEPHARON [None]
  - TOXIC EPIDERMAL NECROLYSIS [None]
  - TRICHIASIS [None]
